FAERS Safety Report 6640355-0 (Version None)
Quarter: 2010Q1

REPORT INFORMATION
  Report Type: 
  Country: None (occurrence: None)
  Receive Date: 20100303
  Receipt Date: 20090518
  Transmission Date: 20100710
  Serious: Yes (Other)
  Sender: FDA-Public Use
  Company Number: 287392

PATIENT
  Age: 41 Year
  Sex: Male

DRUGS (2)
  1. NOVOLIN N [Suspect]
     Indication: TYPE 1 DIABETES MELLITUS
     Dosage: 16 IU, BID, SUBCUTANEOUS
     Route: 058
  2. NOVOLIN R [Suspect]
     Indication: TYPE 1 DIABETES MELLITUS
     Dosage: SLIDING SCALE, TID, SUBCUTANEOUS
     Route: 058

REACTIONS (1)
  - BLOOD GLUCOSE INCREASED [None]
